FAERS Safety Report 8917538 (Version 1)
Quarter: 2012Q4

REPORT INFORMATION
  Report Type: Report from Study
  Country: FR (occurrence: FR)
  Receive Date: 20121120
  Receipt Date: 20121120
  Transmission Date: 20130627
  Serious: Yes (Other)
  Sender: FDA-Public Use
  Company Number: FR-BRISTOL-MYERS SQUIBB COMPANY-17114489

PATIENT
  Age: 63 Year
  Sex: Male
  Weight: 91 kg

DRUGS (10)
  1. ABATACEPT [Suspect]
     Indication: RHEUMATOID ARTHRITIS
     Route: 042
     Dates: start: 20120906
  2. METHOTREXATE [Concomitant]
     Indication: RHEUMATOID ARTHRITIS
     Route: 048
  3. SPECIAFOLDINE [Concomitant]
     Indication: RHEUMATOID ARTHRITIS
     Route: 048
  4. TOPALGIC [Concomitant]
     Indication: RHEUMATOID ARTHRITIS
     Route: 048
  5. SINTROM [Concomitant]
     Indication: CARDIAC DISORDER
     Route: 048
  6. VESICARE [Concomitant]
     Indication: URINARY INCONTINENCE
     Route: 048
  7. CITALOPRAM [Concomitant]
     Indication: DEPRESSION
     Route: 048
  8. SIFROL [Concomitant]
     Indication: PARKINSON^S DISEASE
     Route: 048
  9. COLCHICINE [Concomitant]
     Route: 048
  10. ALLOPURINOL [Concomitant]
     Indication: GOUT
     Route: 048

REACTIONS (1)
  - Psoriasis [Recovered/Resolved]
